FAERS Safety Report 11608533 (Version 1)
Quarter: 2015Q4

REPORT INFORMATION
  Report Type: Spontaneous
  Country: US (occurrence: US)
  Receive Date: 20151007
  Receipt Date: 20151007
  Transmission Date: 20160304
  Serious: Yes (Hospitalization, Other)
  Sender: FDA-Public Use
  Company Number: US-NPS_PHARMACEUTICALS-000730

PATIENT
  Age: 68 Year
  Sex: Female
  Weight: 50 kg

DRUGS (21)
  1. IMITREX INHALER [Concomitant]
     Indication: MIGRAINE
     Dosage: STREN/VOLUM: 20 MG|FREQU: 3 X DAY
     Dates: start: 2013
  2. TPN [Concomitant]
     Active Substance: AMINO ACIDS\DEXTROSE\ELECTROLYTES NOS\SOYBEAN OIL
     Indication: MEDICAL DIET
     Dosage: DF
  3. ESTRADIOL. [Concomitant]
     Active Substance: ESTRADIOL
     Indication: HORMONE REPLACEMENT THERAPY
     Dosage: STREN/VOLUM: 2 MG|FREQU: ONCE A DAY
  4. GATTEX [Suspect]
     Active Substance: TEDUGLUTIDE\WATER
     Route: 058
  5. LORTAB [Concomitant]
     Active Substance: ACETAMINOPHEN\HYDROCODONE BITARTRATE
     Indication: PAIN
     Dosage: STREN/VOLUM: 10 MG / 500 MG|FREQU: EVERY 4 - 6 HOURS AS NEEDED
  6. GATTEX [Suspect]
     Active Substance: TEDUGLUTIDE\WATER
     Route: 058
     Dates: start: 201410, end: 201506
  7. SUMATRIPTAN NASAL SPRAY [Concomitant]
     Active Substance: SUMATRIPTAN
     Indication: MIGRAINE
     Dosage: STREN/VOLUM: 20 MG|FREQU: AS NEEDED FOR MIGRAINES
  8. ZOFRAN SUBLINGUAL [Concomitant]
     Indication: NAUSEA
     Dosage: STREN/VOLUM: 4 MG|FREQU: ONCE A DAY AND AS NEEDED
  9. GATTEX [Suspect]
     Active Substance: TEDUGLUTIDE\WATER
     Indication: SHORT-BOWEL SYNDROME
     Dosage: STREN/VOLUM: 0.25 ML|FREQU: ONCE A DAY
     Route: 058
     Dates: start: 20130618, end: 20130622
  10. LORAZEPAM. [Concomitant]
     Active Substance: LORAZEPAM
     Indication: ANXIETY
     Dosage: STREN/VOLUM: 1 - 2 TABLETS ( DOSE UNKNOWN )|FREQU: ONCE A DAY
  11. LYRICA [Concomitant]
     Active Substance: PREGABALIN
     Indication: NEURALGIA
     Dosage: STREN/VOLUM: 50 MG ( 3 TABLETS )|FREQU: THREE TIMES A DAY
  12. OMEPRAZOLE. [Concomitant]
     Active Substance: OMEPRAZOLE
     Indication: GASTROOESOPHAGEAL REFLUX DISEASE
     Dosage: STREN/VOLUM: 20 MG ( 2 TABLETS )|FREQU: 30 MINUTES BEFORE ALL MEALS
  13. ROBAXIN [Concomitant]
     Active Substance: METHOCARBAMOL
     Indication: MUSCLE RELAXANT THERAPY
     Dosage: STREN/VOLUM: 750 MG|FREQU: FOUR TIMES A DAY AS NEEDED
  14. GATTEX [Suspect]
     Active Substance: TEDUGLUTIDE\WATER
     Route: 058
     Dates: start: 201304
  15. LOMOTIL [Concomitant]
     Active Substance: ATROPINE SULFATE\DIPHENOXYLATE HYDROCHLORIDE
     Indication: DIARRHOEA
     Dosage: STREN/VOLUM: 2 MG ( 2 TABLETS )|FREQU: FOUR TIMES A DAY AS NEEDED
  16. FLUOXETINE [Concomitant]
     Active Substance: FLUOXETINE HYDROCHLORIDE
     Indication: DEPRESSION
     Dosage: STREN/VOLUM: 20 MG ( 2 TABLETS )|FREQU: TWICE A DAY
  17. BUTALBITAL- ACETAMINOPHEN-CAFFEINE [Concomitant]
     Indication: MIGRAINE
     Dosage: STREN/VOLUM: 1 TABLET (DOSE UNKNOWN )|FREQU: EVERY 6 HRS AS NEEDED FOR MIGRAINES
  18. GATTEX [Suspect]
     Active Substance: TEDUGLUTIDE\WATER
     Route: 058
     Dates: start: 20130703, end: 20130722
  19. NYSTATIN CREAM [Concomitant]
     Active Substance: NYSTATIN
     Indication: RASH
     Dosage: STREN/VOLUM: 1 APPLICATION|FREQU: THREE TIMES A DAY
  20. TRAZODONE [Concomitant]
     Active Substance: TRAZODONE HYDROCHLORIDE
     Indication: INSOMNIA
     Dosage: STREN/VOLUM: 1 TABLET ( DOSE UNKNOWN )|FREQU: AT BEDTIME
  21. WARFARIN [Concomitant]
     Active Substance: WARFARIN
     Indication: ANTICOAGULANT THERAPY
     Dosage: STREN/VOLUM: 5 MG|FREQU: ONCE A DAY
     Dates: start: 201302

REACTIONS (28)
  - Weight increased [Recovered/Resolved]
  - Diarrhoea [Unknown]
  - Abdominal distension [Unknown]
  - Vomiting [Unknown]
  - Back pain [Not Recovered/Not Resolved]
  - Oropharyngeal pain [Unknown]
  - Fluid overload [Not Recovered/Not Resolved]
  - Gastrointestinal oedema [Unknown]
  - Generalised oedema [Not Recovered/Not Resolved]
  - Salivary hypersecretion [Not Recovered/Not Resolved]
  - Constipation [Recovered/Resolved]
  - Pruritus [Recovered/Resolved]
  - Drooling [Not Recovered/Not Resolved]
  - Gastrointestinal pain [Not Recovered/Not Resolved]
  - Eructation [Not Recovered/Not Resolved]
  - Abdominal tenderness [Not Recovered/Not Resolved]
  - Cough [Not Recovered/Not Resolved]
  - Abdominal discomfort [Not Recovered/Not Resolved]
  - Abdominal pain [Recovering/Resolving]
  - Headache [Unknown]
  - Nasopharyngitis [Not Recovered/Not Resolved]
  - Nausea [Unknown]
  - Hospitalisation [Unknown]
  - Intestinal stenosis [Unknown]
  - Injection site reaction [Recovering/Resolving]
  - Respiratory disorder [Not Recovered/Not Resolved]
  - Weight decreased [Unknown]
  - Oedema peripheral [Not Recovered/Not Resolved]

NARRATIVE: CASE EVENT DATE: 2013
